FAERS Safety Report 15670326 (Version 3)
Quarter: 2019Q2

REPORT INFORMATION
  Report Type: Spontaneous
  Country: US (occurrence: US)
  Receive Date: 20181129
  Receipt Date: 20190524
  Transmission Date: 20190711
  Serious: Yes (Hospitalization, Other)
  Sender: FDA-Public Use
  Company Number: US-TEVA-2018-US-980564

PATIENT
  Age: 3 Year
  Sex: Female
  Weight: 13.4 kg

DRUGS (5)
  1. HYDROXOCOBALAMIN [Suspect]
     Active Substance: HYDROXOCOBALAMIN
     Dosage: RECEIVED AT 373 MG/KG
     Route: 042
  2. ETOMIDATE. [Concomitant]
     Active Substance: ETOMIDATE
     Route: 065
  3. MIDAZOLAM [Concomitant]
     Active Substance: MIDAZOLAM HYDROCHLORIDE
     Route: 065
  4. SUCCINYLCHOLINE [Suspect]
     Active Substance: SUCCINYLCHOLINE
     Dosage: RECEIVED THREE WEIGHT ADJUSTED DOSES
     Route: 065
  5. FENTANYL. [Concomitant]
     Active Substance: FENTANYL
     Route: 065

REACTIONS (4)
  - Chromaturia [Recovering/Resolving]
  - Overdose [Recovering/Resolving]
  - Bradycardia [Recovered/Resolved]
  - Dermatitis exfoliative generalised [Recovered/Resolved]
